FAERS Safety Report 21905983 (Version 2)
Quarter: 2023Q1

REPORT INFORMATION
  Report Type: Spontaneous
  Country: JP (occurrence: JP)
  Receive Date: 20230124
  Receipt Date: 20230224
  Transmission Date: 20230418
  Serious: Yes (Death, Other)
  Sender: FDA-Public Use
  Company Number: JP-CHUGAI-2023001951

PATIENT
  Age: 58 Year
  Sex: Male
  Weight: 86.8 kg

DRUGS (4)
  1. TECENTRIQ [Suspect]
     Active Substance: ATEZOLIZUMAB
     Indication: Hepatocellular carcinoma
     Route: 041
     Dates: start: 20220812, end: 20221125
  2. TECENTRIQ [Suspect]
     Active Substance: ATEZOLIZUMAB
     Dosage: SINGLE
     Route: 041
     Dates: start: 20230106, end: 20230106
  3. AVASTIN [Suspect]
     Active Substance: BEVACIZUMAB
     Indication: Hepatocellular carcinoma
     Route: 041
     Dates: start: 20220812, end: 20221125
  4. AVASTIN [Suspect]
     Active Substance: BEVACIZUMAB
     Dosage: SINGLE
     Route: 041
     Dates: start: 20230106, end: 20230106

REACTIONS (5)
  - Hepatic failure [Fatal]
  - Hepatic function abnormal [Recovered/Resolved]
  - Portal vein embolism [Fatal]
  - Cholangitis [Recovered/Resolved]
  - Disease progression [Fatal]

NARRATIVE: CASE EVENT DATE: 20221216
